FAERS Safety Report 8328736-0 (Version None)
Quarter: 2012Q2

REPORT INFORMATION
  Report Type: 
  Country: None (occurrence: None)
  Receive Date: 20120502
  Receipt Date: 20120424
  Transmission Date: 20120825
  Serious: Yes (Hospitalization)
  Sender: FDA-Public Use
  Company Number: US-US-EMD SERONO, INC.-7128636

PATIENT
  Sex: Female
  Weight: 96 kg

DRUGS (4)
  1. FLOVENT [Concomitant]
     Indication: ASTHMA
  2. REBIF [Suspect]
     Indication: RELAPSING-REMITTING MULTIPLE SCLEROSIS
     Route: 058
     Dates: start: 20070118, end: 20110801
  3. PREDNISONE TAB [Concomitant]
     Indication: ASTHMA
  4. ALBUTEROL [Concomitant]
     Indication: ASTHMA

REACTIONS (10)
  - HYPOGLYCAEMIA [None]
  - BALANCE DISORDER [None]
  - HYPOAESTHESIA [None]
  - ASTHMA [None]
  - BRONCHITIS [None]
  - NASOPHARYNGITIS [None]
  - HEPATIC ENZYME INCREASED [None]
  - ARTERIOSPASM CORONARY [None]
  - DEHYDRATION [None]
  - HEADACHE [None]
